FAERS Safety Report 11051056 (Version 2)
Quarter: 2015Q3

REPORT INFORMATION
  Report Type: Report from Study
  Country: US (occurrence: None)
  Receive Date: 20150417
  Receipt Date: 20150706
  Transmission Date: 20151125
  Serious: Yes (Disabling, Other)
  Sender: FDA-Public Use
  Company Number: 2015-11055

PATIENT
  Age: 84 Year
  Sex: Female
  Weight: 77.1 kg

DRUGS (6)
  1. EYLEA [Suspect]
     Active Substance: AFLIBERCEPT
     Indication: NEOVASCULAR AGE-RELATED MACULAR DEGENERATION
     Dosage: OD
     Route: 031
     Dates: start: 20150218, end: 20150218
  2. VITAMIN D(ERGOCALCIFEROL) [Concomitant]
  3. ASPIRIN (ACETYLSALICYLIC ACID) [Concomitant]
     Active Substance: ASPIRIN
  4. GLIPIRIDE [Concomitant]
     Active Substance: GLIMEPIRIDE
  5. INSULIN [Concomitant]
     Active Substance: INSULIN NOS
  6. MULTIVITAMN (ASCORBIC ACID, CALCIUM PANTOTHENATE, ERGOCALCIFEROL, NICOTINAMIDE, PYRIDOXINE HYDROCHLORIDE, RETINOL, RIBOFLAVIN, THIAMINE HYDROCHLORIDE) [Concomitant]

REACTIONS (4)
  - Injection site pain [None]
  - Visual field defect [None]
  - Blindness unilateral [None]
  - Eye pain [None]

NARRATIVE: CASE EVENT DATE: 20150218
